FAERS Safety Report 20691050 (Version 1)
Quarter: 2022Q2

REPORT INFORMATION
  Report Type: Spontaneous
  Country: NL (occurrence: NL)
  Receive Date: 20220408
  Receipt Date: 20220408
  Transmission Date: 20220720
  Serious: Yes (Disabling)
  Sender: FDA-Public Use
  Company Number: None

PATIENT
  Sex: Male
  Weight: 106 kg

DRUGS (9)
  1. GABAPENTIN [Suspect]
     Active Substance: GABAPENTIN
     Indication: Polyneuropathy
     Dosage: 600 MILLIGRAM, Q8H (3X PER DAY 2 CAPS, INCREASING TO MAX 3600)
     Dates: start: 2022
  2. DULOXETINE [Concomitant]
     Active Substance: DULOXETINE
     Dosage: 30 MILLIGRAM (GASTRO-RESISTANT CAPSULE, 30 MG (MILLIGRAMS))
  3. ATORVASTATIN [Concomitant]
     Active Substance: ATORVASTATIN
     Dosage: 20 MILLIGRAM (TABLET, 20 MG (MILLIGRAM))
  4. METFORMIN HYDROCHLORIDE [Concomitant]
     Active Substance: METFORMIN HYDROCHLORIDE
     Dosage: 1000 MILLIGRAM (REGULATED-RELEASE TABLET, 1000 MG (MILLIGRAMS))
  5. OMEPRAZOLE [Concomitant]
     Active Substance: OMEPRAZOLE
     Dosage: 20 MILLIGRAM (GASTRO-RESISTANT CAPSULE, 20 MG (MILLIGRAMS))
  6. INSULIN GLARGINE [Concomitant]
     Active Substance: INSULIN GLARGINE
     Dosage: INJECTION SOLUTION, 100 UNITS/ML (UNITS PER MILLILITER)
  7. FEXOFENADINE [Concomitant]
     Active Substance: FEXOFENADINE HYDROCHLORIDE
     Dosage: 180 MILLIGRAM (COATED TABLET, 180 MG (MILLIGRAMS))
  8. GLICLAZIDE [Concomitant]
     Active Substance: GLICLAZIDE
     Dosage: 30 MILLIGRAM (REGULATED-RELEASE TABLET, 30 MG (MILLIGRAMS))
  9. HYDROXOCOBALAMIN [Concomitant]
     Active Substance: HYDROXOCOBALAMIN
     Dosage: INJECTION SOLUTION, 500 ?G/ML (MICROGRAMS PER MILLILITER)

REACTIONS (1)
  - Blood glucose fluctuation [Not Recovered/Not Resolved]
